FAERS Safety Report 4727233-9 (Version None)
Quarter: 2005Q3

REPORT INFORMATION
  Report Type: 
  Country: None (occurrence: None)
  Receive Date: 20050727
  Receipt Date: 20050727
  Transmission Date: 20060218
  Serious: Yes (Other)
  Sender: FDA-Public Use
  Company Number: None

PATIENT
  Age: 53 Year
  Sex: Male
  Weight: 76 kg

DRUGS (2)
  1. KEFLEX [Suspect]
     Indication: INFECTION
     Dosage: 2GM, 500 MG QI, ORAL
     Route: 048
  2. OATP METHADONE [Concomitant]

REACTIONS (3)
  - DERMATITIS [None]
  - ERYTHEMA [None]
  - RASH PAPULAR [None]
